FAERS Safety Report 6525458-3 (Version None)
Quarter: 2010Q1

REPORT INFORMATION
  Report Type: 
  Country: None (occurrence: None)
  Receive Date: 20100104
  Receipt Date: 20091224
  Transmission Date: 20100710
  Serious: Yes (Other)
  Sender: FDA-Public Use
  Company Number: US-ELI_LILLY_AND_COMPANY-US200912005921

PATIENT
  Sex: Female

DRUGS (11)
  1. FORTEO [Suspect]
     Indication: OSTEOPOROSIS
     Dosage: 20 UG, DAILY (1/D)
     Dates: start: 20090904
  2. SYNTHROID [Concomitant]
     Dosage: 0.88 MG, DAILY (1/D)
  3. STRATTERA                               /USA/ [Concomitant]
     Dosage: 40 MG, DAILY (1/D)
  4. BENAGOL [Concomitant]
     Dosage: 20 MG, DAILY (1/D)
  5. LISINOPRIL [Concomitant]
     Dosage: 50 MG, DAILY (1/D)
  6. VITAMIN B-12 [Concomitant]
     Dosage: 1000 MG, DAILY (1/D)
  7. POLYGLYCOLIC ACID [Concomitant]
     Dosage: 17 G, DAILY (1/D)
  8. PREVACID [Concomitant]
     Dosage: 30 MG, 2/D
  9. SERTRALINE HCL [Concomitant]
     Dosage: 50 MG, DAILY (1/D)
  10. CALTRATE [Concomitant]
     Dosage: 1200 MG, DAILY (1/D)
  11. CALCIUM [Concomitant]
     Dosage: 4800 MG, DAILY (1/D)

REACTIONS (2)
  - CARTILAGE INJURY [None]
  - CATHETERISATION CARDIAC [None]
